FAERS Safety Report 5192313-3 (Version None)
Quarter: 2006Q4

REPORT INFORMATION
  Report Type: 
  Country: None (occurrence: None)
  Receive Date: 20061227
  Receipt Date: 20061128
  Transmission Date: 20070319
  Serious: Yes (Hospitalization, Other)
  Sender: FDA-Public Use
  Company Number: US-PFIZER INC-2006150329

PATIENT
  Sex: Female

DRUGS (2)
  1. BEXTRA [Suspect]
  2. VIOXX [Suspect]
     Route: 048
     Dates: start: 20000201

REACTIONS (3)
  - CARDIAC FAILURE CONGESTIVE [None]
  - MYOCARDIAL INFARCTION [None]
  - RENAL ARTERY OCCLUSION [None]
